FAERS Safety Report 15366750 (Version 1)
Quarter: 2018Q3

REPORT INFORMATION
  Report Type: Spontaneous
  Country: US (occurrence: US)
  Receive Date: 20180901
  Receipt Date: 20180901
  Transmission Date: 20181010
  Serious: No
  Sender: FDA-Public Use
  Company Number: None

PATIENT
  Age: 41 Year
  Sex: Female
  Weight: 90 kg

DRUGS (4)
  1. IRON [Concomitant]
     Active Substance: IRON
  2. VITAMIN D [Concomitant]
     Active Substance: CHOLECALCIFEROL
  3. ARESTIN [Suspect]
     Active Substance: MINOCYCLINE HYDROCHLORIDE
     Indication: PERIODONTAL DISEASE
     Dosage: ?          QUANTITY:4 INJECTION(S);OTHER FREQUENCY:INJECTED ONCE;OTHER ROUTE:INJECTED INTO MY GUM AREA?
     Dates: start: 20180823
  4. HAIR, SKIN AND NAIL VITAMIN [Concomitant]

REACTIONS (2)
  - Dizziness [None]
  - Tinnitus [None]

NARRATIVE: CASE EVENT DATE: 20180831
